FAERS Safety Report 8577003-9 (Version None)
Quarter: 2012Q3

REPORT INFORMATION
  Report Type: 
  Country: None (occurrence: None)
  Receive Date: 20120807
  Receipt Date: 20120730
  Transmission Date: 20120928
  Serious: Yes (Hospitalization, Other)
  Sender: FDA-Public Use
  Company Number: IE-MEDIMMUNE-MEDI-0015269

PATIENT
  Sex: Male
  Weight: 9.2 kg

DRUGS (7)
  1. KAPSOVIT [Concomitant]
  2. SYNAGIS [Suspect]
     Indication: PREMATURE BABY
     Route: 030
     Dates: start: 20111007
  3. FERROUS SULFATE TAB [Concomitant]
  4. VIGABATRIN [Concomitant]
     Indication: INFANTILE SPASMS
     Dates: start: 20120405
  5. BACLOFEN [Concomitant]
     Indication: MUSCLE SPASTICITY
     Dates: start: 20111025
  6. LACTULOSE [Concomitant]
  7. LANSOPRAZOLE [Concomitant]
     Indication: GASTROOESOPHAGEAL REFLUX DISEASE
     Dates: start: 20110801

REACTIONS (5)
  - URINARY TRACT INFECTION [None]
  - INFANTILE SPASMS [None]
  - CEREBRAL DISORDER [None]
  - NASOPHARYNGITIS [None]
  - COUGH [None]
